FAERS Safety Report 9605561 (Version 1)
Quarter: 2013Q4

REPORT INFORMATION
  Report Type: Spontaneous
  Country: US (occurrence: US)
  Receive Date: 20131008
  Receipt Date: 20131008
  Transmission Date: 20140711
  Serious: No
  Sender: FDA-Public Use
  Company Number: US-PFIZER INC-2013285946

PATIENT
  Age: 65 Year
  Sex: Male
  Weight: 77.1 kg

DRUGS (10)
  1. NEURONTIN [Suspect]
     Indication: PAIN
     Dosage: 3600 MG, DAILY
     Route: 048
  2. NEURONTIN [Suspect]
     Dosage: 2400 MG, DAILY
     Route: 048
  3. NEURONTIN [Suspect]
     Dosage: 1800 MG, DAILY
     Route: 048
  4. NEURONTIN [Suspect]
     Dosage: UNK
     Route: 048
  5. DONEPEZIL [Concomitant]
     Dosage: UNK
  6. CLONAZEPAM [Concomitant]
     Dosage: UNK
  7. OXAPROZIN [Concomitant]
     Dosage: UNK
  8. TRAZODONE [Concomitant]
     Dosage: UNK
  9. HYDROCODONE [Concomitant]
     Dosage: UNK
  10. OXYCODONE [Concomitant]
     Dosage: UNK

REACTIONS (5)
  - Off label use [Not Recovered/Not Resolved]
  - Intention tremor [Not Recovered/Not Resolved]
  - Memory impairment [Not Recovered/Not Resolved]
  - Dysphemia [Not Recovered/Not Resolved]
  - Balance disorder [Not Recovered/Not Resolved]
